FAERS Safety Report 10508994 (Version 4)
Quarter: 2015Q2

REPORT INFORMATION
  Report Type: Spontaneous
  Country: JP (occurrence: JP)
  Receive Date: 20141009
  Receipt Date: 20150413
  Transmission Date: 20150821
  Serious: Yes (Death, Hospitalization, Other)
  Sender: FDA-Public Use
  Company Number: JP-GLAXOSMITHKLINE-A201411048

PATIENT
  Age: 48 Year
  Sex: Male

DRUGS (6)
  1. TEGRETOL [Concomitant]
     Active Substance: CARBAMAZEPINE
     Indication: NAUSEA
  2. MUCOSTA [Concomitant]
     Active Substance: REBAMIPIDE
     Indication: PROPHYLAXIS
     Dosage: 100 MG, BID
     Dates: start: 20130510
  3. LOXONIN [Concomitant]
     Active Substance: LOXOPROFEN SODIUM
     Indication: HEADACHE
     Dosage: 60 MG, BID
     Dates: start: 20130510
  4. TEGRETOL [Concomitant]
     Active Substance: CARBAMAZEPINE
     Indication: EPILEPSY
     Dosage: 100 MG, BID
     Dates: start: 20140829, end: 20140904
  5. CRAVIT [Concomitant]
     Active Substance: LEVOFLOXACIN
     Dosage: UNK
     Dates: start: 20140919
  6. LAMOTRIGINE. [Suspect]
     Active Substance: LAMOTRIGINE
     Indication: EPILEPSY
     Dosage: 25 MG, BID
     Route: 048
     Dates: start: 20140905, end: 20140919

REACTIONS (16)
  - Pneumonia [Unknown]
  - Rash [Unknown]
  - Pyrexia [Unknown]
  - Immunodeficiency [Unknown]
  - Disseminated intravascular coagulation [Unknown]
  - Platelet count decreased [Unknown]
  - Lymphadenopathy [Unknown]
  - Dyspnoea [Unknown]
  - Mydriasis [Unknown]
  - Blood pressure decreased [Unknown]
  - Liver disorder [Unknown]
  - Acute respiratory distress syndrome [Unknown]
  - Hepatic function abnormal [Unknown]
  - General symptom [Unknown]
  - Pulmonary function test decreased [Unknown]
  - Drug reaction with eosinophilia and systemic symptoms [Fatal]

NARRATIVE: CASE EVENT DATE: 201409
